FAERS Safety Report 4746689-9 (Version None)
Quarter: 2005Q3

REPORT INFORMATION
  Report Type: 
  Country: None (occurrence: None)
  Receive Date: 20050815
  Receipt Date: 20050803
  Transmission Date: 20060218
  Serious: Yes (Hospitalization, Other)
  Sender: FDA-Public Use
  Company Number: 2005078537

PATIENT
  Age: 69 Year
  Sex: Female
  Weight: 83.9154 kg

DRUGS (12)
  1. CELEBREX [Suspect]
     Indication: ARTHRITIS
     Dosage: 200 MG (200 MG, 1 IN 1 D), ORAL
     Route: 048
     Dates: start: 20000201, end: 20031001
  2. LIPITOR [Suspect]
     Indication: ILL-DEFINED DISORDER
     Dosage: ORAL
     Route: 048
     Dates: start: 20050101
  3. COUMADIN [Concomitant]
  4. POTASSIUM CHLORIDE [Concomitant]
  5. NORVASC [Concomitant]
  6. GLUCOPHAGE [Concomitant]
  7. GLYBURIDE (GLINBENCLAMIDE) [Concomitant]
  8. HYDRALAZINE HCL [Concomitant]
  9. ISOSORBIDE (ISOSORBIDE) [Concomitant]
  10. LABETALOL HCL [Concomitant]
  11. DEMADEX [Concomitant]
  12. BENZAPERIL (BENZAPERIL) [Concomitant]

REACTIONS (11)
  - ANGIOPATHY [None]
  - CARDIAC FAILURE CONGESTIVE [None]
  - CEREBROVASCULAR ACCIDENT [None]
  - COLONIC POLYP [None]
  - CORONARY ARTERY STENOSIS [None]
  - DRUG EFFECT DECREASED [None]
  - GASTROINTESTINAL HAEMORRHAGE [None]
  - HEART RATE INCREASED [None]
  - INTESTINAL MASS [None]
  - PROCEDURAL COMPLICATION [None]
  - VASCULAR GRAFT OCCLUSION [None]
